FAERS Safety Report 5865801-1 (Version None)
Quarter: 2008Q3

REPORT INFORMATION
  Report Type: 
  Country: None (occurrence: None)
  Receive Date: 20080829
  Receipt Date: 20080819
  Transmission Date: 20090109
  Serious: No
  Sender: FDA-Public Use
  Company Number: AU-EISAI MEDIAL RESEARCH-E3810-01795-SPO-AU

PATIENT
  Sex: Male

DRUGS (7)
  1. RABEPRAZOLE SODIUM [Suspect]
     Dosage: UNKNOWN
     Route: 048
  2. RABEPRAZOLE SODIUM [Suspect]
     Dosage: UNKNOWN
     Route: 048
  3. RABEPRAZOLE SODIUM [Suspect]
     Dosage: UNKNOWN
     Route: 048
  4. AVAPRO [Concomitant]
  5. ISCOVER [Concomitant]
  6. LIPITOR [Concomitant]
  7. FELODUR [Concomitant]

REACTIONS (4)
  - BIOPSY STOMACH ABNORMAL [None]
  - GASTRIC MUCOSAL HYPERTROPHY [None]
  - NAUSEA [None]
  - PANCREATITIS [None]
